APPROVED DRUG PRODUCT: QVAR REDIHALER
Active Ingredient: BECLOMETHASONE DIPROPIONATE
Strength: 0.04MG/INH
Dosage Form/Route: AEROSOL, METERED;INHALATION
Application: N207921 | Product #001
Applicant: NORTON WATERFORD LTD
Approved: Aug 3, 2017 | RLD: Yes | RS: Yes | Type: RX

PATENTS:
Patent 11395889 | Expires: May 18, 2031
Patent 12296089 | Expires: Jan 26, 2038
Patent 10022510 | Expires: May 18, 2031
Patent 10695512 | Expires: May 18, 2031
Patent 8132712 | Expires: Sep 7, 2028
Patent 10022509 | Expires: May 18, 2031
Patent 10561808 | Expires: Jan 1, 2032
Patent 11793953 | Expires: Jan 26, 2038
Patent 10792447 | Expires: Jan 25, 2039
Patent 11957832 | Expires: May 5, 2041
Patent 10086156 | Expires: May 18, 2031
Patent 11395888 | Expires: Jan 26, 2038
Patent 11559637 | Expires: Jul 21, 2039
Patent 11583643 | Expires: Aug 19, 2041
Patent 8931476 | Expires: Jul 17, 2031